FAERS Safety Report 10363970 (Version 2)
Quarter: 2014Q4

REPORT INFORMATION
  Report Type: Spontaneous
  Country: US (occurrence: US)
  Receive Date: 20140805
  Receipt Date: 20141009
  Transmission Date: 20150528
  Serious: Yes (Other)
  Sender: FDA-Public Use
  Company Number: US-GILEAD-2014-0110715

PATIENT
  Age: 87 Year
  Sex: Male

DRUGS (1)
  1. RANEXA [Suspect]
     Active Substance: RANOLAZINE
     Indication: ANGINA PECTORIS
     Dosage: 500 MG, BID
     Route: 065

REACTIONS (3)
  - Cardiac pacemaker insertion [Unknown]
  - Bradycardia [Unknown]
  - Dizziness [Not Recovered/Not Resolved]
